FAERS Safety Report 11109653 (Version 1)
Quarter: 2015Q2

REPORT INFORMATION
  Report Type: Spontaneous
  Country: US (occurrence: None)
  Receive Date: 20150512
  Receipt Date: 20150512
  Transmission Date: 20150821
  Serious: Yes (Other)
  Sender: FDA-Public Use
  Company Number: None

PATIENT
  Age: 62 Year
  Sex: Female
  Weight: 103.87 kg

DRUGS (9)
  1. LORATADINE. [Concomitant]
     Active Substance: LORATADINE
  2. NEURONTIN [Concomitant]
     Active Substance: GABAPENTIN
  3. NUCYNTA ER [Suspect]
     Active Substance: TAPENTADOL HYDROCHLORIDE
     Indication: PAIN
     Dosage: 1 TAB BID ORAL
     Route: 048
     Dates: start: 20150410, end: 20150511
  4. CLONAZEPAM. [Concomitant]
     Active Substance: CLONAZEPAM
  5. ACETAMINOPHEN/HYDROCODONE [Concomitant]
     Active Substance: ACETAMINOPHEN\HYDROCODONE
  6. TOPAMAX [Concomitant]
     Active Substance: TOPIRAMATE
  7. SINGULAIR [Concomitant]
     Active Substance: MONTELUKAST SODIUM
  8. ALBUTEROL HFA [Concomitant]
     Active Substance: ALBUTEROL SULFATE
  9. KCL [Concomitant]
     Active Substance: POTASSIUM CHLORIDE

REACTIONS (2)
  - Hot flush [None]
  - Autonomic nervous system imbalance [None]

NARRATIVE: CASE EVENT DATE: 20150511
